FAERS Safety Report 17645818 (Version 2)
Quarter: 2020Q2

REPORT INFORMATION
  Report Type: Spontaneous
  Country: CH (occurrence: CH)
  Receive Date: 20200408
  Receipt Date: 20200427
  Transmission Date: 20200713
  Serious: Yes (Other)
  Sender: FDA-Public Use
  Company Number: CH-ROCHE-2574272

PATIENT
  Age: 75 Year
  Sex: Male
  Weight: 105 kg

DRUGS (3)
  1. RIXATHON [Suspect]
     Active Substance: RITUXIMAB
     Indication: DIFFUSE LARGE B-CELL LYMPHOMA
     Route: 065
     Dates: start: 20190326, end: 20190709
  2. GEMCITABINE. [Suspect]
     Active Substance: GEMCITABINE
     Indication: DIFFUSE LARGE B-CELL LYMPHOMA
     Route: 065
  3. RIXATHON [Suspect]
     Active Substance: RITUXIMAB
     Route: 065

REACTIONS (2)
  - Diffuse large B-cell lymphoma recurrent [Not Recovered/Not Resolved]
  - Skin necrosis [Recovered/Resolved]

NARRATIVE: CASE EVENT DATE: 20190819
